FAERS Safety Report 20436413 (Version 4)
Quarter: 2022Q2

REPORT INFORMATION
  Report Type: Report from Study
  Country: MX (occurrence: MX)
  Receive Date: 20220207
  Receipt Date: 20220519
  Transmission Date: 20220720
  Serious: Yes (Hospitalization, Other)
  Sender: FDA-Public Use
  Company Number: MX-NOVARTISPH-NVSC2022MX025604

PATIENT
  Age: 39 Year
  Sex: Female
  Weight: 63 kg

DRUGS (1)
  1. TASIGNA [Suspect]
     Active Substance: NILOTINIB
     Indication: Chronic myeloid leukaemia
     Dosage: UNK
     Route: 048
     Dates: start: 2015

REACTIONS (12)
  - Chronic myeloid leukaemia [Unknown]
  - Malignant neoplasm progression [Unknown]
  - Facial paralysis [Unknown]
  - COVID-19 [Unknown]
  - Oropharyngeal discomfort [Unknown]
  - Hypersensitivity [Unknown]
  - Weight decreased [Recovering/Resolving]
  - Gait disturbance [Unknown]
  - Muscle spasms [Unknown]
  - Dry skin [Unknown]
  - Urticaria [Unknown]
  - Amenorrhoea [Unknown]

NARRATIVE: CASE EVENT DATE: 20220201
